FAERS Safety Report 17360527 (Version 1)
Quarter: 2020Q1

REPORT INFORMATION
  Report Type: Spontaneous
  Country: US (occurrence: US)
  Receive Date: 20200203
  Receipt Date: 20200203
  Transmission Date: 20200409
  Serious: No
  Sender: FDA-Public Use
  Company Number: US-MYLANLABS-2020M1008432

PATIENT
  Sex: Female
  Weight: 78 kg

DRUGS (1)
  1. XULANE [Suspect]
     Active Substance: ETHINYL ESTRADIOL\NORELGESTROMIN
     Indication: CONTRACEPTION
     Dosage: 150, AS PRESCRIBED
     Route: 062
     Dates: start: 201912

REACTIONS (1)
  - Menstruation delayed [Not Recovered/Not Resolved]
